FAERS Safety Report 4819217-7 (Version None)
Quarter: 2005Q4

REPORT INFORMATION
  Report Type: 
  Country: None (occurrence: None)
  Receive Date: 20051103
  Receipt Date: 20051024
  Transmission Date: 20060501
  Serious: Yes (Hospitalization)
  Sender: FDA-Public Use
  Company Number: FR-GLAXOSMITHKLINE-B0398624A

PATIENT
  Age: 42 Year
  Sex: Male

DRUGS (4)
  1. COMBIVIR [Suspect]
     Indication: HIV INFECTION
     Dosage: 2UNIT PER DAY
     Route: 048
  2. CACIT [Concomitant]
     Route: 048
  3. FOSAMAX [Concomitant]
     Route: 048
  4. KALETRA [Concomitant]
     Indication: HIV INFECTION
     Route: 048

REACTIONS (3)
  - ANAEMIA [None]
  - ASTHENIA [None]
  - DYSPNOEA [None]
